FAERS Safety Report 11826989 (Version 2)
Quarter: 2017Q1

REPORT INFORMATION
  Report Type: Report from Study
  Country: US (occurrence: US)
  Receive Date: 20151211
  Receipt Date: 20170308
  Transmission Date: 20170428
  Serious: Yes (Other)
  Sender: FDA-Public Use
  Company Number: PHEH2015US025701

PATIENT
  Sex: Female

DRUGS (1)
  1. GLEEVEC [Suspect]
     Active Substance: IMATINIB MESYLATE
     Indication: LEUKAEMIA
     Route: 065

REACTIONS (4)
  - Lower respiratory tract infection [Unknown]
  - Fall [Unknown]
  - Upper limb fracture [Unknown]
  - Oropharyngeal pain [Unknown]
